FAERS Safety Report 11677648 (Version 1)
Quarter: 2015Q4

REPORT INFORMATION
  Report Type: Report from Study
  Country: US (occurrence: None)
  Receive Date: 20151028
  Receipt Date: 20151028
  Transmission Date: 20160304
  Serious: No
  Sender: FDA-Public Use
  Company Number: ADR-2015-01426

PATIENT
  Age: 68 Year
  Sex: Male

DRUGS (4)
  1. DILAUDID [Suspect]
     Active Substance: HYDROMORPHONE HYDROCHLORIDE
     Indication: PROSTATE CANCER
     Dosage: 0.7507 MG/DAY
  2. COMPOUNDED BACLOFEN INTRATHECAL 600 MCG/ML [Suspect]
     Active Substance: BACLOFEN
     Indication: NEOPLASM MALIGNANT
     Dosage: 450.43 MCG/DAY
  3. DILAUDID [Suspect]
     Active Substance: HYDROMORPHONE HYDROCHLORIDE
     Indication: CHEMOTHERAPY
     Dosage: 0.7507 MG/DAY
  4. COMPOUNDED BACLOFEN INTRATHECAL 600 MCG/ML [Suspect]
     Active Substance: BACLOFEN
     Indication: CHEMOTHERAPY
     Dosage: 450.43 MCG/DAY

REACTIONS (1)
  - Hypoaesthesia [None]
